FAERS Safety Report 11173876 (Version 1)
Quarter: 2015Q2

REPORT INFORMATION
  Report Type: Spontaneous
  Country: US (occurrence: US)
  Receive Date: 20150609
  Receipt Date: 20150609
  Transmission Date: 20150821
  Serious: Yes (Other)
  Sender: FDA-Public Use
  Company Number: US-DRREDDYS-USA/USA/14/0041085

PATIENT
  Age: 61 Year
  Sex: Male

DRUGS (9)
  1. MYCOPHENOLATE [Suspect]
     Active Substance: MYCOPHENOLIC ACID
     Indication: IMMUNOSUPPRESSION
     Route: 065
  2. FLUCONAZOLE. [Suspect]
     Active Substance: FLUCONAZOLE
     Indication: BALAMUTHIA INFECTION
     Route: 065
  3. PENTAMIDINE [Suspect]
     Active Substance: PENTAMIDINE
     Indication: BALAMUTHIA INFECTION
     Route: 042
  4. BASILIXIMAB [Suspect]
     Active Substance: BASILIXIMAB
     Indication: IMMUNOSUPPRESSION
     Route: 065
  5. AZITHROMYCIN [Suspect]
     Active Substance: AZITHROMYCIN ANHYDROUS
     Indication: BALAMUTHIA INFECTION
     Route: 065
  6. TACROLIMUS. [Suspect]
     Active Substance: TACROLIMUS
     Indication: IMMUNOSUPPRESSION
     Route: 065
  7. PREDNISONE. [Suspect]
     Active Substance: PREDNISONE
     Indication: IMMUNOSUPPRESSION
     Route: 065
  8. ALBENDAZOLE [Suspect]
     Active Substance: ALBENDAZOLE
     Indication: BALAMUTHIA INFECTION
     Route: 065
  9. MILTEFOSINE [Suspect]
     Active Substance: MILTEFOSINE
     Indication: BALAMUTHIA INFECTION
     Route: 065

REACTIONS (5)
  - Decreased appetite [Recovered/Resolved]
  - Nausea [Recovered/Resolved]
  - Balamuthia infection [Recovered/Resolved]
  - Malaise [Recovered/Resolved]
  - Liver function test abnormal [Recovered/Resolved]
